FAERS Safety Report 20901925 (Version 1)
Quarter: 2022Q2

REPORT INFORMATION
  Report Type: Spontaneous
  Country: VN (occurrence: None)
  Receive Date: 20220601
  Receipt Date: 20220601
  Transmission Date: 20220721
  Serious: Yes (Death)
  Sender: FDA-Public Use
  Company Number: VN-ROCHE-3106133

PATIENT
  Age: 64 Year

DRUGS (3)
  1. POLIVY [Suspect]
     Active Substance: POLATUZUMAB VEDOTIN-PIIQ
     Indication: Diffuse large B-cell lymphoma
     Dosage: 1.8 MG/KG EVERY 21 DAYS IN
     Route: 042
  2. BENDAMUSTINE [Suspect]
     Active Substance: BENDAMUSTINE
     Indication: Diffuse large B-cell lymphoma
     Dosage: 90 MG/M2/DAY ON?DAY 1 + DAY 2 EVERY 21 DAYS
     Route: 042
  3. MABTHERA [Suspect]
     Active Substance: RITUXIMAB
     Indication: Diffuse large B-cell lymphoma
     Dosage: 375 MG/M2 EVERY 21 DAYS
     Route: 041

REACTIONS (2)
  - Death [Fatal]
  - Off label use [Fatal]
